FAERS Safety Report 9369030 (Version 1)
Quarter: 2013Q2

REPORT INFORMATION
  Report Type: Report from Study
  Country: EC (occurrence: EC)
  Receive Date: 20130626
  Receipt Date: 20130626
  Transmission Date: 20140414
  Serious: Yes (Other)
  Sender: FDA-Public Use
  Company Number: PHHY2013EC065439

PATIENT
  Age: 80 Year
  Sex: Male

DRUGS (4)
  1. EXFORGE [Suspect]
     Indication: HYPERTENSION
     Dosage: 1 DF (160 MG VALS, 5 MG AMLO), QD
     Route: 048
     Dates: start: 2011
  2. HEMAX [Concomitant]
     Dosage: UNK UKN, UNK
     Route: 042
  3. VENOFER [Concomitant]
     Dosage: UNK UKN, UNK
     Route: 042
  4. SODIUM BICARBONATE [Concomitant]
     Dosage: UNK UKN, UNK

REACTIONS (1)
  - Foot fracture [Recovering/Resolving]
